FAERS Safety Report 19569598 (Version 1)
Quarter: 2021Q3

REPORT INFORMATION
  Report Type: Report from Study
  Country: IE (occurrence: IE)
  Receive Date: 20210716
  Receipt Date: 20210716
  Transmission Date: 20211014
  Serious: Yes (Hospitalization)
  Sender: FDA-Public Use
  Company Number: IE-PFIZER INC-2021833560

PATIENT
  Weight: 33.1 kg

DRUGS (34)
  1. MITOXANTRONE HCL [Suspect]
     Active Substance: MITOXANTRONE HYDROCHLORIDE
     Indication: ACUTE MYELOID LEUKAEMIA
     Dosage: 14 MG/M2, 1X/DAY
     Route: 042
     Dates: start: 20210605, end: 20210608
  2. COTRIMOXAZOLE [Concomitant]
     Active Substance: SULFAMETHOXAZOLE\TRIMETHOPRIM
     Indication: ANTIBIOTIC PROPHYLAXIS
     Dosage: 480 MG, 2X/DAY
     Dates: start: 20210626, end: 20210627
  3. OXYNORM [Concomitant]
     Active Substance: OXYCODONE HYDROCHLORIDE
     Dosage: 5 MG, 3X/DAY
     Dates: start: 20210620, end: 20210623
  4. NYSTATIN. [Concomitant]
     Active Substance: NYSTATIN
     Indication: ANTIFUNGAL PROPHYLAXIS
     Dosage: 1 ML, 4X/DAY (EVERY 6 HOURS)
     Dates: start: 20210615, end: 20210623
  5. ONDANSETRON [Concomitant]
     Active Substance: ONDANSETRON
     Dosage: 6 MG, 3X/DAY
     Dates: start: 20210625, end: 20210627
  6. OXYNORM [Concomitant]
     Active Substance: OXYCODONE HYDROCHLORIDE
     Dosage: 5 MG, 3X/DAY
     Dates: start: 20210625, end: 20210627
  7. AMBISOME [Concomitant]
     Active Substance: AMPHOTERICIN B
     Indication: ANTIFUNGAL PROPHYLAXIS
     Dosage: 34 MG, 1X/DAY
     Dates: start: 20210611, end: 20210620
  8. OXYNORM [Concomitant]
     Active Substance: OXYCODONE HYDROCHLORIDE
     Indication: PAIN
     Dosage: 5 MG, EVERY 4 HRS
     Dates: start: 20210615, end: 20210617
  9. TAZOCIN [Concomitant]
     Active Substance: PIPERACILLIN SODIUM\TAZOBACTAM SODIUM
     Indication: ANTIBIOTIC PROPHYLAXIS
     Dosage: 3 G, 4X/DAY (EVERY 6 HOURS)
     Dates: start: 20210611, end: 20210621
  10. POSACONAZOLE [Concomitant]
     Active Substance: POSACONAZOLE
     Indication: ANTIFUNGAL PROPHYLAXIS
     Dosage: 260 MG, 2X/DAY
     Dates: start: 20210621, end: 20210623
  11. ONDANSETRON [Concomitant]
     Active Substance: ONDANSETRON
     Indication: ANTIEMETIC SUPPORTIVE CARE
     Dosage: 6 MG, 3X/DAY
     Dates: start: 20210611, end: 20210623
  12. AMILORIDE [Concomitant]
     Active Substance: AMILORIDE
     Dosage: 5 MG, 2X/DAY
     Dates: start: 20210618, end: 20210620
  13. HEPARIN SODIUM. [Concomitant]
     Active Substance: HEPARIN SODIUM
     Dosage: 2.5 ML, AS NEEDED
     Dates: start: 20210625, end: 20210627
  14. GEMTUZUMAB OZOGAMICIN [Suspect]
     Active Substance: GEMTUZUMAB OZOGAMICIN
     Indication: ACUTE MYELOID LEUKAEMIA
     Dosage: 3.5 MG (OTHER)
     Route: 042
     Dates: start: 20210608, end: 20210614
  15. TAZOCIN [Concomitant]
     Active Substance: PIPERACILLIN SODIUM\TAZOBACTAM SODIUM
     Dosage: 2.8 G, 4X/DAY (EVERY 6 HOURS)
     Dates: start: 20210625, end: 20210627
  16. COTRIMOXAZOLE [Concomitant]
     Active Substance: SULFAMETHOXAZOLE\TRIMETHOPRIM
     Dosage: 480 MG, 2X/DAY
     Dates: start: 20210612, end: 20210621
  17. HEPARIN SODIUM. [Concomitant]
     Active Substance: HEPARIN SODIUM
     Indication: ANTICOAGULANT THERAPY
     Dosage: 2.5 ML, 4X/DAY
     Dates: start: 20210613, end: 20210623
  18. PENTAMYCIN [Concomitant]
     Indication: ANTIFUNGAL PROPHYLAXIS
     Dosage: 232 MG, 1X/DAY
     Dates: start: 20210616, end: 20210617
  19. KIN [ALOE VERA;CETYLPYRIDINIUM CHLORIDE;DEXPANTHENOL;SODIUM FLUORIDE] [Concomitant]
     Indication: GINGIVITIS
     Dosage: 5 ML, 2X/DAY
     Dates: start: 20210611, end: 20210623
  20. AMILORIDE [Concomitant]
     Active Substance: AMILORIDE
     Indication: HYPERTENSION
     Dosage: 5 MG, 2X/DAY
     Dates: start: 20210611, end: 20210618
  21. BUSCOPAN [Concomitant]
     Active Substance: BUTYLSCOPOLAMINE BROMIDE
     Indication: ANTICHOLINERGIC SYNDROME
     Dosage: 10 MG, 3X/DAY
     Dates: start: 20210621, end: 20210621
  22. PARACETAMOL [Concomitant]
     Active Substance: ACETAMINOPHEN
     Indication: PAIN
     Dosage: 510 MG, ALTERNATE DAY
     Dates: start: 20210611, end: 20210617
  23. PARACETAMOL [Concomitant]
     Active Substance: ACETAMINOPHEN
     Dosage: 470 MG, 4X/DAY
     Dates: start: 20210625, end: 20210625
  24. GENTAMICIN. [Concomitant]
     Active Substance: GENTAMICIN
     Dosage: 220 MG, 1X/DAY
     Dates: start: 20210625, end: 20210626
  25. PENTAMYCIN [Concomitant]
     Indication: ANTIBIOTIC PROPHYLAXIS
  26. OMEPRAZOLE. [Concomitant]
     Active Substance: OMEPRAZOLE
     Dosage: 20 MG, 1X/DAY
     Dates: start: 20210625, end: 20210627
  27. CHLORPHENAMINE [Concomitant]
     Active Substance: CHLORPHENIRAMINE MALEATE
     Indication: ANTIALLERGIC THERAPY
     Dosage: 5 MG (OTHER) 14TH, 15TH AND 23RD JUN
     Dates: start: 20210614, end: 20210623
  28. NYSTATIN. [Concomitant]
     Active Substance: NYSTATIN
     Dosage: 1.0 ML, 4X/DAY (EVERY 6 HOURS)
     Dates: start: 20210625, end: 20210627
  29. POSACONAZOLE [Concomitant]
     Active Substance: POSACONAZOLE
     Dosage: 260 MG, 2X/DAY
     Dates: start: 20210625, end: 20210627
  30. KIN [ALOE VERA;CETYLPYRIDINIUM CHLORIDE;DEXPANTHENOL;SODIUM FLUORIDE] [Concomitant]
     Indication: PERIODONTAL DISEASE
  31. OMEPRAZOLE. [Concomitant]
     Active Substance: OMEPRAZOLE
     Indication: GASTROOESOPHAGEAL REFLUX DISEASE
     Dosage: 20 MG, 1X/DAY
     Dates: start: 20210621, end: 20210623
  32. OXYNORM [Concomitant]
     Active Substance: OXYCODONE HYDROCHLORIDE
     Dosage: 5 MG, 4X/DAY (EVERY 6 HOURS)
     Dates: start: 20210617, end: 20210620
  33. ESOMEPRAZOLE. [Concomitant]
     Active Substance: ESOMEPRAZOLE MAGNESIUM
     Indication: GASTROOESOPHAGEAL REFLUX DISEASE
     Dosage: 20 MG, 1X/DAY
     Dates: start: 20210615, end: 20210620
  34. LEVOMEPROMAZINE [Concomitant]
     Active Substance: LEVOMEPROMAZINE
     Indication: TOXICITY TO VARIOUS AGENTS
     Dosage: 3 MG, 2X/DAY
     Dates: start: 20210617, end: 20210623

REACTIONS (1)
  - Febrile neutropenia [Not Recovered/Not Resolved]

NARRATIVE: CASE EVENT DATE: 20210630
